FAERS Safety Report 5177742-6 (Version None)
Quarter: 2006Q4

REPORT INFORMATION
  Report Type: 
  Country: None (occurrence: None)
  Receive Date: 20061218
  Receipt Date: 20060921
  Transmission Date: 20070319
  Serious: No
  Sender: FDA-Public Use
  Company Number: US-AMGEN-KDL194322

PATIENT
  Sex: Female
  Weight: 86 kg

DRUGS (6)
  1. SENSIPAR [Suspect]
     Indication: HYPERPARATHYROIDISM SECONDARY
     Route: 048
     Dates: start: 20051106, end: 20060912
  2. FOSRENOL [Concomitant]
     Route: 065
     Dates: start: 20060901
  3. VENOFER [Concomitant]
     Route: 065
     Dates: start: 20060401
  4. ZEMPLAR [Concomitant]
     Route: 065
     Dates: start: 20060501
  5. RENAGEL [Concomitant]
     Route: 065
     Dates: start: 20060301
  6. EPOGEN [Concomitant]
     Route: 065
     Dates: start: 20060301

REACTIONS (1)
  - NAUSEA [None]
